FAERS Safety Report 6423120-9 (Version None)
Quarter: 2009Q4

REPORT INFORMATION
  Report Type: 
  Country: None (occurrence: None)
  Receive Date: 20091102
  Receipt Date: 20091002
  Transmission Date: 20100525
  Serious: No
  Sender: FDA-Public Use
  Company Number: US-BAYER-200926291NA

PATIENT
  Age: 26 Year
  Sex: Female
  Weight: 75 kg

DRUGS (4)
  1. YAZ [Suspect]
     Indication: CONTRACEPTION
     Route: 048
     Dates: start: 20070201, end: 20090801
  2. PRILOSEC [Concomitant]
     Indication: DRUG USE FOR UNKNOWN INDICATION
  3. ZYRTEC [Concomitant]
     Indication: SEASONAL ALLERGY
  4. CLARITIN [Concomitant]
     Indication: SEASONAL ALLERGY

REACTIONS (7)
  - ABDOMINAL PAIN LOWER [None]
  - FUNGAL INFECTION [None]
  - HEADACHE [None]
  - METRORRHAGIA [None]
  - MUSCLE SPASMS [None]
  - OEDEMA PERIPHERAL [None]
  - TOOTH DEPOSIT [None]
